FAERS Safety Report 11342045 (Version 1)
Quarter: 2015Q3

REPORT INFORMATION
  Report Type: Spontaneous
  Country: AU (occurrence: AU)
  Receive Date: 20150805
  Receipt Date: 20150805
  Transmission Date: 20151125
  Serious: Yes (Other)
  Sender: FDA-Public Use
  Company Number: AU-MUNDIPHARMA DS AND PHARMACOVIGILANCE-GBR-2015-0029973

PATIENT
  Sex: Female

DRUGS (1)
  1. TARGIN [Suspect]
     Active Substance: NALOXONE HYDROCHLORIDE\OXYCODONE HYDROCHLORIDE
     Indication: PROCEDURAL PAIN
     Dosage: UNK
     Route: 048
     Dates: start: 201506, end: 201506

REACTIONS (3)
  - Delirium [Recovered/Resolved]
  - Off label use [Unknown]
  - Product use issue [Unknown]

NARRATIVE: CASE EVENT DATE: 201506
